FAERS Safety Report 6144057-9 (Version None)
Quarter: 2009Q2

REPORT INFORMATION
  Report Type: 
  Country: None (occurrence: None)
  Receive Date: 20090406
  Receipt Date: 20090305
  Transmission Date: 20091009
  Serious: No
  Sender: FDA-Public Use
  Company Number: US-BAYER-200914927NA

PATIENT
  Age: 65 Year
  Sex: Female

DRUGS (5)
  1. AVELOX [Suspect]
     Indication: BRONCHITIS
     Dates: start: 20090205, end: 20090207
  2. SINGULAIR [Concomitant]
  3. XOPENEX [Concomitant]
     Route: 055
  4. MULTI-VITAMIN [Concomitant]
  5. ASCORBIC ACID [Concomitant]

REACTIONS (10)
  - DRY MOUTH [None]
  - DYSGEUSIA [None]
  - ENLARGED UVULA [None]
  - INSOMNIA [None]
  - LEUKOPLAKIA ORAL [None]
  - NAUSEA [None]
  - PAIN IN EXTREMITY [None]
  - TINNITUS [None]
  - URTICARIA [None]
  - VISION BLURRED [None]
